FAERS Safety Report 7821401-5 (Version None)
Quarter: 2011Q4

REPORT INFORMATION
  Report Type: 
  Country: None (occurrence: None)
  Receive Date: 20111018
  Receipt Date: 20111005
  Transmission Date: 20120403
  Serious: Yes (Hospitalization, Other)
  Sender: FDA-Public Use
  Company Number: FR-ACTELION-A-CH2006-11780

PATIENT
  Sex: Male
  Weight: 85 kg

DRUGS (13)
  1. ALLOPURINOL [Concomitant]
  2. ZAVESCA [Suspect]
     Indication: GAUCHER'S DISEASE
     Dosage: 100 MG, BID
     Route: 048
     Dates: start: 20060201
  3. ZAVESCA [Suspect]
     Dosage: 100 MG, QD
     Route: 048
     Dates: start: 20060120, end: 20060130
  4. ZAVESCA [Suspect]
     Dosage: 100 MG, TID
     Route: 048
     Dates: start: 20060210, end: 20060201
  5. IMODIUM [Concomitant]
  6. DEPAKENE [Concomitant]
  7. ZAVESCA [Suspect]
     Dosage: 100 MG, BID
     Route: 048
     Dates: start: 20060131, end: 20060209
  8. CEREZYME [Suspect]
     Dates: start: 20050101
  9. ZONEGRAN [Concomitant]
  10. PHENOBARBITAL TAB [Concomitant]
  11. ZAVESCA [Suspect]
     Dosage: 400 MG, OD
     Route: 048
     Dates: start: 20091005
  12. URBANYL [Concomitant]
  13. TOPIRAMATE [Concomitant]

REACTIONS (16)
  - PERIPHERAL SENSORY NEUROPATHY [None]
  - DIARRHOEA [None]
  - BONE PAIN [None]
  - SPLENOMEGALY [None]
  - PLATELET COUNT DECREASED [None]
  - EPILEPSY [None]
  - BACK PAIN [None]
  - HYPERSENSITIVITY [None]
  - MYOCLONUS [None]
  - PYREXIA [None]
  - TREMOR [None]
  - STATUS EPILEPTICUS [None]
  - POLYNEUROPATHY [None]
  - MONOCLONAL IMMUNOGLOBULIN PRESENT [None]
  - ABDOMINAL PAIN [None]
  - OSTEOPENIA [None]
